FAERS Safety Report 8518772-3 (Version None)
Quarter: 2012Q3

REPORT INFORMATION
  Report Type: 
  Country: None (occurrence: None)
  Receive Date: 20120718
  Receipt Date: 20120713
  Transmission Date: 20120928
  Serious: Yes (Other)
  Sender: FDA-Public Use
  Company Number: PHHY2012AU060655

PATIENT
  Sex: Female

DRUGS (1)
  1. SANDOSTATIN LAR [Suspect]
     Indication: ACROMEGALY
     Dosage: 30 MG
     Route: 030

REACTIONS (5)
  - ERYTHEMA [None]
  - LOWER RESPIRATORY TRACT INFECTION [None]
  - NEEDLE ISSUE [None]
  - INFLUENZA LIKE ILLNESS [None]
  - PRURITUS [None]
